FAERS Safety Report 5458584-0 (Version None)
Quarter: 2007Q3

REPORT INFORMATION
  Report Type: 
  Country: None (occurrence: None)
  Receive Date: 20070919
  Receipt Date: 20070412
  Transmission Date: 20080115
  Serious: No
  Sender: FDA-Public Use
  Company Number: US-ASTRAZENECA-2007UW07207

PATIENT
  Age: 47 Year
  Sex: Female
  Weight: 72.6 kg

DRUGS (1)
  1. SEROQUEL [Suspect]
     Indication: MENOPAUSE
     Route: 048
     Dates: start: 20070411

REACTIONS (3)
  - CHOKING [None]
  - FEELING ABNORMAL [None]
  - MEMORY IMPAIRMENT [None]
